FAERS Safety Report 7653007-5 (Version None)
Quarter: 2011Q3

REPORT INFORMATION
  Report Type: 
  Country: None (occurrence: None)
  Receive Date: 20110803
  Receipt Date: 20110726
  Transmission Date: 20111222
  Serious: Yes (Hospitalization)
  Sender: FDA-Public Use
  Company Number: AU-ROCHE-790345

PATIENT
  Sex: Male
  Weight: 69 kg

DRUGS (11)
  1. ACTEMRA [Suspect]
     Indication: RHEUMATOID ARTHRITIS
     Route: 042
     Dates: start: 20100610
  2. METHOTREXATE [Concomitant]
     Route: 048
  3. METFORMIN HCL [Concomitant]
     Route: 048
  4. PREDNISOLONE [Suspect]
     Route: 048
     Dates: start: 20081127
  5. ACTEMRA [Suspect]
     Route: 042
     Dates: start: 20110405
  6. ACTEMRA [Suspect]
     Route: 042
     Dates: start: 20110606
  7. PERENTEROL [Concomitant]
     Route: 048
  8. ACTEMRA [Suspect]
     Route: 042
     Dates: start: 20110505
  9. ACTEMRA [Suspect]
     Route: 042
     Dates: start: 20110531
  10. DIAMICRON [Concomitant]
     Route: 048
  11. CORTICOSTEROIDS [Concomitant]
     Route: 048

REACTIONS (1)
  - TRANSIENT ISCHAEMIC ATTACK [None]
